FAERS Safety Report 16048021 (Version 2)
Quarter: 2019Q2

REPORT INFORMATION
  Report Type: Spontaneous
  Country: US (occurrence: US)
  Receive Date: 20190307
  Receipt Date: 20190418
  Transmission Date: 20190711
  Serious: Yes (Other)
  Sender: FDA-Public Use
  Company Number: US-BECTON DICKINSON-2019BDN00065

PATIENT
  Age: 1 Year
  Sex: Female
  Weight: 8.35 kg

DRUGS (7)
  1. CHLORAPREP [Suspect]
     Active Substance: CHLORHEXIDINE GLUCONATE\ISOPROPYL ALCOHOL
     Indication: INFECTION PROPHYLAXIS
     Dosage: 3 ML, ONCE
     Route: 061
     Dates: start: 20190204, end: 20190204
  2. DOT PGLIDE 22G 8CM FULL (DEVICE) [Suspect]
     Active Substance: DEVICE
  3. OCUFLOX [Concomitant]
     Active Substance: OFLOXACIN
     Dosage: 5 GTT IN BOTH EARS, 2X/DAY
     Route: 001
     Dates: start: 20180803, end: 20190204
  4. VITAMIN E TOPICAL OIL [Concomitant]
     Dosage: UNK
     Dates: end: 20190204
  5. MYCOSTATIN [Concomitant]
     Active Substance: NYSTATIN
     Dosage: 1 ML, 4X/DAY
     Route: 048
     Dates: end: 20190204
  6. CHLORAPREP WITH TINT [Suspect]
     Active Substance: CHLORHEXIDINE GLUCONATE\ISOPROPYL ALCOHOL
     Indication: INFECTION PROPHYLAXIS
     Dosage: 3 ML, ONCE
     Route: 061
     Dates: start: 20190204, end: 20190204
  7. CLEOCIN [Concomitant]
     Active Substance: CLINDAMYCIN PHOSPHATE
     Dosage: 81.9 MG, 4X/DAY (EVERY 6 HOURS)
     Route: 048
     Dates: end: 20190206

REACTIONS (2)
  - Foreign body [Recovered/Resolved]
  - Complication of device removal [Recovered/Resolved]

NARRATIVE: CASE EVENT DATE: 20190204
